FAERS Safety Report 4587437-5 (Version None)
Quarter: 2005Q1

REPORT INFORMATION
  Report Type: 
  Country: None (occurrence: None)
  Receive Date: 20050215
  Receipt Date: 20050202
  Transmission Date: 20050727
  Serious: Yes (Other)
  Sender: FDA-Public Use
  Company Number: 2002097077IE

PATIENT
  Age: 47 Year
  Sex: Female
  Weight: 104.4 kg

DRUGS (9)
  1. GENOTROPIN [Suspect]
     Indication: HYPOPITUITARISM
     Dosage: 0.4 MG (QD), SUBCUTANEOUS
     Route: 058
     Dates: start: 19990914, end: 20010606
  2. HYDROCORTISONE [Concomitant]
  3. CABERGOLINE [Concomitant]
  4. LEVOTHYROXINE SODIUM [Concomitant]
  5. ACETYLSALICYLIC ACID SRT [Concomitant]
  6. RANITIDINE [Concomitant]
  7. KLIOGEST (ESTRADIOL, NORETHISTERONE ACETATE) [Concomitant]
  8. METOPROLOL TARTRATE [Concomitant]
  9. BROMOCRIPTINE MESYLATE [Concomitant]

REACTIONS (9)
  - CHORDOMA [None]
  - DYSPNOEA PAROXYSMAL NOCTURNAL [None]
  - EMPTY SELLA SYNDROME [None]
  - FATIGUE [None]
  - NEOPLASM RECURRENCE [None]
  - NUCLEAR MAGNETIC RESONANCE IMAGING BRAIN ABNORMAL [None]
  - PROLACTINOMA [None]
  - SLEEP APNOEA SYNDROME [None]
  - WEIGHT INCREASED [None]
